FAERS Safety Report 6258817-7 (Version None)
Quarter: 2009Q3

REPORT INFORMATION
  Report Type: 
  Country: None (occurrence: None)
  Receive Date: 20090702
  Receipt Date: 20090622
  Transmission Date: 20100115
  Serious: Yes (Other)
  Sender: FDA-Public Use
  Company Number: ADE#  09-088

PATIENT
  Age: 32 Year
  Sex: Female
  Weight: 68.0396 kg

DRUGS (1)
  1. CLONAZEPAM [Suspect]
     Indication: PANIC ATTACK
     Dosage: 0.5MG IN AM + PM

REACTIONS (3)
  - CHEST PAIN [None]
  - DYSPNOEA [None]
  - THROAT TIGHTNESS [None]
